FAERS Safety Report 6072870-5 (Version None)
Quarter: 2009Q1

REPORT INFORMATION
  Report Type: 
  Country: None (occurrence: None)
  Receive Date: 20090205
  Receipt Date: 20090129
  Transmission Date: 20090719
  Serious: Yes (Hospitalization)
  Sender: FDA-Public Use
  Company Number: 6048649

PATIENT
  Age: 61 Year
  Sex: Female

DRUGS (6)
  1. BISOPROLOL FUMARATE [Suspect]
     Indication: ATRIAL FIBRILLATION
     Dosage: 5 MG (5 MG,1 IN 1 D) ORAL
     Route: 048
     Dates: start: 20080825, end: 20080826
  2. DIGOXIN [Suspect]
     Indication: ATRIAL FIBRILLATION
     Dosage: ORAL
     Route: 048
     Dates: end: 20080826
  3. DIANBEN (850 MG) (METFORMIN) [Concomitant]
  4. ALDACTONE [Concomitant]
  5. PREVENCOR (ATORVASTATIN CALCIUM) [Concomitant]
  6. ACENOCUMAROL (ACENOCOUMAROL) [Concomitant]

REACTIONS (5)
  - ATRIOVENTRICULAR BLOCK [None]
  - DRUG INTERACTION [None]
  - NAUSEA [None]
  - NODAL RHYTHM [None]
  - VOMITING [None]
